FAERS Safety Report 5731770-8 (Version None)
Quarter: 2008Q2

REPORT INFORMATION
  Report Type: 
  Country: None (occurrence: None)
  Receive Date: 20080508
  Receipt Date: 20080429
  Transmission Date: 20081010
  Serious: Yes (Other)
  Sender: FDA-Public Use
  Company Number: US-ROCHE-552165

PATIENT
  Sex: Female
  Weight: 58.1 kg

DRUGS (16)
  1. BONIVA [Suspect]
     Indication: OSTEOPOROSIS
     Route: 065
     Dates: start: 20070301, end: 20071201
  2. PREDNISONE TAB [Concomitant]
     Indication: RHEUMATOID ARTHRITIS
     Dates: start: 20000101
  3. VICODIN [Concomitant]
     Dosage: DOSE: 5-500 MG; 1 EVERY 6 HOURS AS NECESSARY
     Route: 048
  4. VICODIN [Concomitant]
     Dosage: DOSE: 5-500 MG; 1 EVERY 6 HOURS AS NECESSARY
     Route: 048
  5. NAPROXEN [Concomitant]
     Route: 048
  6. ARAVA [Concomitant]
     Route: 048
  7. NAPROXEN [Concomitant]
     Dosage: DOSE: 125MG/5ML. TAKEN WITH FOOD.
  8. LEVODOPA [Concomitant]
     Route: 048
  9. IMURAN [Concomitant]
  10. CALCIUM/VITAMIN D [Concomitant]
  11. CALCIUM/VITAMIN D [Concomitant]
  12. EUFLEXXA [Concomitant]
     Dosage: AS NECESSARY
     Route: 014
  13. RITUXAN [Concomitant]
     Indication: RHEUMATOID ARTHRITIS
     Dosage: DOSING FREQUENCY: INFUSIONS EVERY 6 MONTHS
  14. NORCO [Concomitant]
  15. NORCO [Concomitant]
  16. KENALOG [Concomitant]

REACTIONS (9)
  - ALANINE AMINOTRANSFERASE INCREASED [None]
  - CONSTIPATION [None]
  - DIARRHOEA [None]
  - FAILURE OF IMPLANT [None]
  - MUSCLE SPASMS [None]
  - OSTEONECROSIS [None]
  - SCIATICA [None]
  - SINUS HEADACHE [None]
  - SPINAL OSTEOARTHRITIS [None]
